FAERS Safety Report 15671684 (Version 1)
Quarter: 2018Q4

REPORT INFORMATION
  Report Type: Report from Study
  Country: US (occurrence: US)
  Receive Date: 20181129
  Receipt Date: 20181129
  Transmission Date: 20190205
  Serious: No
  Sender: FDA-Public Use
  Company Number: US-TESARO-US-2018TSO02451

PATIENT
  Age: 58 Year
  Sex: Female

DRUGS (5)
  1. ZEJULA [Suspect]
     Active Substance: NIRAPARIB
     Indication: OVARIAN CANCER
     Dosage: 200 MG, QD
     Route: 048
  2. BACTRIM [Concomitant]
     Active Substance: SULFAMETHOXAZOLE\TRIMETHOPRIM
     Indication: PRODUCT USED FOR UNKNOWN INDICATION
     Dosage: CURRENTLY TAKING FOR 10 DAYS
  3. LOVENOX [Concomitant]
     Active Substance: ENOXAPARIN SODIUM
     Indication: PRODUCT USED FOR UNKNOWN INDICATION
     Dosage: UNK, BID
  4. ZEJULA [Suspect]
     Active Substance: NIRAPARIB
     Dosage: 100 MG ALTERNATING WITH 200 MG DAILY
     Route: 048
     Dates: start: 20180507
  5. ZEJULA [Suspect]
     Active Substance: NIRAPARIB
     Dosage: 100 MG, QD
     Route: 048

REACTIONS (6)
  - Decreased appetite [Unknown]
  - Rash [Recovering/Resolving]
  - Skin laceration [Unknown]
  - Inappropriate schedule of product administration [Recovered/Resolved]
  - Insomnia [Unknown]
  - Intentional underdose [Recovered/Resolved]

NARRATIVE: CASE EVENT DATE: 20180507
